FAERS Safety Report 11352053 (Version 1)
Quarter: 2015Q3

REPORT INFORMATION
  Report Type: Spontaneous
  Country: US (occurrence: US)
  Receive Date: 20150807
  Receipt Date: 20150807
  Transmission Date: 20151125
  Serious: No
  Sender: FDA-Public Use
  Company Number: US-JNJFOC-20150705467

PATIENT
  Age: 52 Year
  Sex: Female
  Weight: 49.9 kg

DRUGS (4)
  1. ZYRTEC-D [Suspect]
     Active Substance: CETIRIZINE HYDROCHLORIDE\PSEUDOEPHEDRINE HYDROCHLORIDE
     Route: 048
  2. ZYRTEC-D [Suspect]
     Active Substance: CETIRIZINE HYDROCHLORIDE\PSEUDOEPHEDRINE HYDROCHLORIDE
     Indication: MULTIPLE ALLERGIES
     Dosage: SOMETIME EVERY 24 HOURS
     Route: 048
  3. CANDESARTAN [Concomitant]
     Active Substance: CANDESARTAN
     Indication: MIGRAINE
     Dosage: COUPLE YEARS
     Route: 065
  4. VIIBRYD [Concomitant]
     Active Substance: VILAZODONE HYDROCHLORIDE
     Indication: ANXIETY
     Route: 065

REACTIONS (2)
  - Abdominal pain upper [Unknown]
  - Lipase increased [Unknown]
